FAERS Safety Report 5831988-X (Version None)
Quarter: 2008Q3

REPORT INFORMATION
  Report Type: 
  Country: None (occurrence: None)
  Receive Date: 20080729
  Receipt Date: 20080717
  Transmission Date: 20090109
  Serious: Yes (Other)
  Sender: FDA-Public Use
  Company Number: 2008AP000230

PATIENT
  Age: 39 Year
  Sex: Female

DRUGS (8)
  1. PAROXETINE HCL [Suspect]
     Indication: DEPRESSION
     Dosage: 20MG; PO, PO;, TAB; PO;, SYR; PO;, 30 MG; TAB; PO;, 20 MG; TAB; PO;, TAB; PO;
     Route: 048
     Dates: end: 20041207
  2. PAROXETINE HCL [Suspect]
     Indication: DEPRESSION
     Dosage: 20MG; PO, PO;, TAB; PO;, SYR; PO;, 30 MG; TAB; PO;, 20 MG; TAB; PO;, TAB; PO;
     Route: 048
     Dates: start: 20030101
  3. PAROXETINE HCL [Suspect]
     Indication: DEPRESSION
     Dosage: 20MG; PO, PO;, TAB; PO;, SYR; PO;, 30 MG; TAB; PO;, 20 MG; TAB; PO;, TAB; PO;
     Route: 048
     Dates: start: 20030701
  4. PAROXETINE HCL [Suspect]
     Indication: DEPRESSION
     Dosage: 20MG; PO, PO;, TAB; PO;, SYR; PO;, 30 MG; TAB; PO;, 20 MG; TAB; PO;, TAB; PO;
     Route: 048
     Dates: start: 20040121
  5. PAROXETINE HCL [Suspect]
     Indication: DEPRESSION
     Dosage: 20MG; PO, PO;, TAB; PO;, SYR; PO;, 30 MG; TAB; PO;, 20 MG; TAB; PO;, TAB; PO;
     Route: 048
     Dates: start: 20080624
  6. CITALOPRAM HYDROBROMIDE [Concomitant]
  7. DIAZEPAM [Concomitant]
  8. FLUOXETINE HCL [Concomitant]

REACTIONS (18)
  - AMNESIA [None]
  - ANXIETY [None]
  - ASTHENIA [None]
  - CHILLS [None]
  - DIZZINESS [None]
  - FATIGUE [None]
  - HEADACHE [None]
  - HOT FLUSH [None]
  - HYPERHIDROSIS [None]
  - MALAISE [None]
  - NAUSEA [None]
  - PALLOR [None]
  - PANIC ATTACK [None]
  - POOR QUALITY SLEEP [None]
  - TREMOR [None]
  - VOMITING [None]
  - WHEEZING [None]
  - WITHDRAWAL SYNDROME [None]
